FAERS Safety Report 7867597-0 (Version None)
Quarter: 2011Q4

REPORT INFORMATION
  Report Type: 
  Country: None (occurrence: None)
  Receive Date: 20111028
  Receipt Date: 20111013
  Transmission Date: 20120403
  Serious: Yes (Other)
  Sender: FDA-Public Use
  Company Number: CN-WATSON-2011-17660

PATIENT
  Age: 40 Year
  Sex: Male

DRUGS (2)
  1. MIRTAZAPINE [Suspect]
     Indication: DEPRESSION
  2. RISPERIDONE [Suspect]
     Indication: SCHIZOPHRENIA

REACTIONS (2)
  - PULMONARY EMBOLISM [None]
  - RHABDOMYOLYSIS [None]
